FAERS Safety Report 9735842 (Version 1)
Quarter: 2013Q4

REPORT INFORMATION
  Report Type: Spontaneous
  Country: US (occurrence: US)
  Receive Date: 20131206
  Receipt Date: 20131206
  Transmission Date: 20140711
  Serious: No
  Sender: FDA-Public Use
  Company Number: US-GILEAD-2009-0024029

PATIENT
  Sex: Female
  Weight: 81.65 kg

DRUGS (12)
  1. LETAIRIS [Suspect]
     Indication: PULMONARY ARTERIAL HYPERTENSION
     Route: 048
     Dates: start: 20090709
  2. FUROSEMIDE [Concomitant]
  3. SINGULAIR [Concomitant]
  4. TYLENOL [Concomitant]
  5. SIMVASTATIN [Concomitant]
  6. CITRUCEL [Concomitant]
  7. FLOVENT [Concomitant]
  8. ASPIRIN [Concomitant]
  9. COMBIVENT [Concomitant]
  10. PROAIR HFA [Concomitant]
  11. RANITIDINE [Concomitant]
  12. OMEPRAZOLE [Concomitant]

REACTIONS (4)
  - Cough [Unknown]
  - Palpitations [Recovered/Resolved]
  - Dyspnoea [Unknown]
  - Headache [Recovered/Resolved]
